FAERS Safety Report 20078967 (Version 1)
Quarter: 2021Q4

REPORT INFORMATION
  Report Type: Spontaneous
  Country: US (occurrence: US)
  Receive Date: 20211117
  Receipt Date: 20211117
  Transmission Date: 20220304
  Serious: No
  Sender: FDA-Public Use
  Company Number: US-TARO-2021TAR00841

PATIENT

DRUGS (2)
  1. TRETINOIN [Suspect]
     Active Substance: TRETINOIN
     Indication: Acne
     Dosage: SMALL AMOUNT, DAILY, APPLIED TOPICALLY ON FACE AT BEDTIME
     Route: 061
     Dates: start: 202106, end: 202107
  2. TRETINOIN [Suspect]
     Active Substance: TRETINOIN
     Dosage: SMALL AMOUNT, 1DOSE/48HOUR, APPLIED TOPICALLY ON FACE AT BEDTIME
     Route: 061
     Dates: start: 20210728

REACTIONS (2)
  - Application site rash [Not Recovered/Not Resolved]
  - Application site pruritus [Not Recovered/Not Resolved]

NARRATIVE: CASE EVENT DATE: 20210701
